FAERS Safety Report 9722948 (Version 1)
Quarter: 2013Q4

REPORT INFORMATION
  Report Type: Spontaneous
  Country: FR (occurrence: FR)
  Receive Date: 20131202
  Receipt Date: 20131202
  Transmission Date: 20140711
  Serious: Yes (Other)
  Sender: FDA-Public Use
  Company Number: FR-JNJFOC-20131117341

PATIENT
  Age: 51 Year
  Sex: Female
  Weight: 100 kg

DRUGS (3)
  1. XARELTO [Suspect]
     Indication: CEREBROVASCULAR ACCIDENT PROPHYLAXIS
     Route: 048
     Dates: start: 20130616, end: 20131020
  2. XARELTO [Suspect]
     Indication: ATRIAL FIBRILLATION
     Route: 048
     Dates: start: 20130616, end: 20131020
  3. ACEBUTOLOL [Concomitant]
     Route: 065
     Dates: start: 20130615

REACTIONS (3)
  - Arthralgia [Recovering/Resolving]
  - Fasciitis [Recovering/Resolving]
  - Tendonitis [Recovering/Resolving]
